FAERS Safety Report 24093601 (Version 1)
Quarter: 2024Q3

REPORT INFORMATION
  Report Type: Spontaneous
  Country: US (occurrence: US)
  Receive Date: 20240715
  Receipt Date: 20240715
  Transmission Date: 20241017
  Serious: Yes (Life-Threatening, Hospitalization, Other)
  Sender: SHIONOGI
  Company Number: US-SUN PHARMACEUTICAL INDUSTRIES LTD-2024R1-454450

PATIENT

DRUGS (20)
  1. FETROJA [Suspect]
     Active Substance: CEFIDEROCOL SULFATE TOSYLATE
     Indication: Burkholderia cepacia complex infection
     Dosage: UNK
     Route: 065
  2. FETROJA [Suspect]
     Active Substance: CEFIDEROCOL SULFATE TOSYLATE
     Indication: Alpha haemolytic streptococcal infection
     Dosage: UNK
     Route: 065
  3. FETROJA [Suspect]
     Active Substance: CEFIDEROCOL SULFATE TOSYLATE
     Indication: Neisseria infection
  4. FETROJA [Suspect]
     Active Substance: CEFIDEROCOL SULFATE TOSYLATE
     Indication: Staphylococcal infection
  5. FETROJA [Suspect]
     Active Substance: CEFIDEROCOL SULFATE TOSYLATE
     Indication: Haemophilus infection
  6. FETROJA [Suspect]
     Active Substance: CEFIDEROCOL SULFATE TOSYLATE
     Indication: Drug resistance
  7. ERTAPENEM [Suspect]
     Active Substance: ERTAPENEM
     Indication: Alpha haemolytic streptococcal infection
     Dosage: UNK
     Route: 065
  8. ERTAPENEM [Suspect]
     Active Substance: ERTAPENEM
     Indication: Burkholderia cepacia complex infection
  9. ERTAPENEM [Suspect]
     Active Substance: ERTAPENEM
     Indication: Neisseria infection
  10. MEROPENEM [Suspect]
     Active Substance: MEROPENEM
     Indication: Burkholderia cepacia complex infection
     Dosage: UNK
     Route: 065
  11. MEROPENEM [Suspect]
     Active Substance: MEROPENEM
     Indication: Staphylococcal infection
     Dosage: UNK
     Route: 065
  12. MEROPENEM [Suspect]
     Active Substance: MEROPENEM
     Indication: Haemophilus infection
  13. MEROPENEM [Suspect]
     Active Substance: MEROPENEM
     Indication: Drug resistance
  14. MEROPENEM [Suspect]
     Active Substance: MEROPENEM
     Indication: Burkholderia infection
  15. MEROPENEM [Suspect]
     Active Substance: MEROPENEM
     Indication: Mediastinitis
  16. MOXIFLOXACIN [Suspect]
     Active Substance: MOXIFLOXACIN
     Indication: Burkholderia cepacia complex infection
     Dosage: UNK
     Route: 065
  17. MOXIFLOXACIN [Suspect]
     Active Substance: MOXIFLOXACIN
     Indication: Staphylococcal infection
  18. MOXIFLOXACIN [Suspect]
     Active Substance: MOXIFLOXACIN
     Indication: Haemophilus infection
  19. MOXIFLOXACIN [Suspect]
     Active Substance: MOXIFLOXACIN
     Indication: Drug resistance
  20. TRIKAFTA [Concomitant]
     Active Substance: ELEXACAFTOR\IVACAFTOR\TEZACAFTOR
     Indication: CFTR gene mutation
     Dosage: UNK
     Route: 065

REACTIONS (14)
  - Therapy non-responder [Unknown]
  - Tracheal inflammation [Unknown]
  - Metastases to lung [Unknown]
  - Excessive granulation tissue [Unknown]
  - Metaplasia [Unknown]
  - Burkholderia cepacia complex infection [Recovering/Resolving]
  - Burkholderia infection [Recovering/Resolving]
  - Mediastinitis [Recovering/Resolving]
  - Haemoptysis [Recovering/Resolving]
  - Night sweats [Recovering/Resolving]
  - Dysphagia [Recovering/Resolving]
  - Chest pain [Recovering/Resolving]
  - Back pain [Recovering/Resolving]
  - Pyrexia [Recovering/Resolving]
